FAERS Safety Report 11156326 (Version 4)
Quarter: 2020Q3

REPORT INFORMATION
  Report Type: Spontaneous
  Country: DE (occurrence: DE)
  Receive Date: 20150602
  Receipt Date: 20200807
  Transmission Date: 20201102
  Serious: Yes (Hospitalization, Other)
  Sender: FDA-Public Use
  Company Number: GXKR2015DE002676

PATIENT
  Age: 8 Month
  Sex: Female
  Weight: 2.32 kg

DRUGS (5)
  1. LEVETIRACETAM. [Suspect]
     Active Substance: LEVETIRACETAM
     Dosage: MATERNAL DOSE 000 MG, QD (1000 MG, UNK (500 MG, 2X/DAY (BID)
     Route: 064
     Dates: start: 20140603, end: 20150205
  2. TOPIRAMATE. [Suspect]
     Active Substance: TOPIRAMATE
     Dosage: MATERNAL DOSE 200 MG, QD (100 MG, 2X/DAY (BID))
     Route: 064
     Dates: start: 20140603, end: 20150205
  3. FOLSAEURE [Concomitant]
     Active Substance: FOLIC ACID
     Indication: FOETAL EXPOSURE DURING PREGNANCY
     Dosage: UNK
     Route: 064
     Dates: start: 2014
  4. LEVETIRACETAM. [Suspect]
     Active Substance: LEVETIRACETAM
     Indication: FOETAL EXPOSURE DURING PREGNANCY
     Dosage: 500 MG, BID (500 MG, 2X/DAY (BID))
     Route: 064
     Dates: start: 20140520, end: 20150205
  5. TOPIRAMATE. [Suspect]
     Active Substance: TOPIRAMATE
     Indication: FOETAL EXPOSURE DURING PREGNANCY
     Dosage: MATERNAL DOSE 100 MG, BID (100 MG, 2X/DAY (BID))
     Route: 064
     Dates: start: 20140520, end: 20150205

REACTIONS (5)
  - Foetal growth restriction [Unknown]
  - Respiratory disorder neonatal [Recovered/Resolved]
  - Low birth weight baby [Unknown]
  - Small for dates baby [Unknown]
  - Maternal exposure during pregnancy [Unknown]

NARRATIVE: CASE EVENT DATE: 20140603
